FAERS Safety Report 17356346 (Version 2)
Quarter: 2020Q1

REPORT INFORMATION
  Report Type: Spontaneous
  Country: CH (occurrence: CH)
  Receive Date: 20200131
  Receipt Date: 20200303
  Transmission Date: 20200409
  Serious: Yes (Other)
  Sender: FDA-Public Use
  Company Number: CH-ASTRAZENECA-2020SE12247

PATIENT
  Sex: Male

DRUGS (6)
  1. INCRUSE ELLIPTA [Concomitant]
     Active Substance: UMECLIDINIUM BROMIDE
  2. AVAMYS [Concomitant]
     Active Substance: FLUTICASONE FUROATE
     Route: 065
  3. FASENRA [Suspect]
     Active Substance: BENRALIZUMAB
     Route: 058
  4. FLUTIFORM [Concomitant]
     Active Substance: FLUTICASONE PROPIONATE\FORMOTEROL FUMARATE
     Dosage: 250/10 MCG 2-0-0-2
  5. CANSARTAN PLUS [Concomitant]
  6. EMSER SALT [Concomitant]

REACTIONS (1)
  - Pneumonia [Recovered/Resolved]
